FAERS Safety Report 10357207 (Version 3)
Quarter: 2015Q2

REPORT INFORMATION
  Report Type: Spontaneous
  Country: US (occurrence: US)
  Receive Date: 20140801
  Receipt Date: 20150528
  Transmission Date: 20150821
  Serious: Yes (Other)
  Sender: FDA-Public Use
  Company Number: US-SA-2014SA102166

PATIENT
  Age: 75 Year
  Sex: Female

DRUGS (7)
  1. LEVEMIR [Interacting]
     Active Substance: INSULIN DETEMIR
     Indication: PRODUCT USED FOR UNKNOWN INDICATION
     Route: 065
  2. LANTUS [Interacting]
     Active Substance: INSULIN GLARGINE
     Indication: TYPE 1 DIABETES MELLITUS
     Dosage: DOSE: 6-10UNITS
     Route: 065
     Dates: start: 2001
  3. TYLENOL [Suspect]
     Active Substance: ACETAMINOPHEN
     Route: 065
  4. LANTUS [Interacting]
     Active Substance: INSULIN GLARGINE
     Indication: TYPE 1 DIABETES MELLITUS
     Dosage: DOSE:8 UNIT(S)
     Route: 065
  5. LANTUS [Interacting]
     Active Substance: INSULIN GLARGINE
     Indication: TYPE 1 DIABETES MELLITUS
     Dosage: DOSE: 6-10UNITS
     Route: 065
  6. LANTUS [Interacting]
     Active Substance: INSULIN GLARGINE
     Indication: TYPE 1 DIABETES MELLITUS
     Dosage: DOSE:9 UNIT(S)
     Route: 065
  7. LEVEMIR [Interacting]
     Active Substance: INSULIN DETEMIR
     Indication: PRODUCT USED FOR UNKNOWN INDICATION
     Route: 065

REACTIONS (5)
  - Blindness [Unknown]
  - Hypoglycaemia [Unknown]
  - Blood pressure increased [Unknown]
  - Blood glucose increased [Unknown]
  - Drug interaction [Unknown]
